FAERS Safety Report 4897384-7 (Version None)
Quarter: 2006Q1

REPORT INFORMATION
  Report Type: 
  Country: None (occurrence: None)
  Receive Date: 20060130
  Receipt Date: 20060130
  Transmission Date: 20060701
  Serious: Yes (Hospitalization, Other)
  Sender: FDA-Public Use
  Company Number: None

PATIENT
  Age: 79 Year
  Sex: Female
  Weight: 86.1834 kg

DRUGS (4)
  1. ATIVAN [Suspect]
     Indication: BIPOLAR DISORDER
     Dosage: 2 MG X1 INJECTION IM
     Route: 030
     Dates: start: 20051006
  2. NEURONTIN [Concomitant]
  3. TYLENOL [Concomitant]
  4. VICODIN [Concomitant]

REACTIONS (11)
  - AGGRESSION [None]
  - ARTHRALGIA [None]
  - CONTUSION [None]
  - DRUG ADMINISTRATION ERROR [None]
  - JOINT RANGE OF MOTION DECREASED [None]
  - LACERATION [None]
  - LOSS OF CONSCIOUSNESS [None]
  - MEDICATION ERROR [None]
  - PAIN [None]
  - ROTATOR CUFF SYNDROME [None]
  - SHOULDER PAIN [None]
